FAERS Safety Report 4939052-9 (Version None)
Quarter: 2006Q1

REPORT INFORMATION
  Report Type: 
  Country: None (occurrence: None)
  Receive Date: 20060309
  Receipt Date: 20060109
  Transmission Date: 20060701
  Serious: Yes (Hospitalization, Disabling)
  Sender: FDA-Public Use
  Company Number: US-MERCK-0601USA01267

PATIENT
  Age: 72 Year
  Sex: Female
  Weight: 82 kg

DRUGS (9)
  1. VIOXX [Suspect]
     Indication: RHEUMATOID ARTHRITIS
     Route: 048
     Dates: start: 20020101
  2. VIOXX [Suspect]
     Route: 048
     Dates: start: 20031101, end: 20041028
  3. METHOTREXATE [Concomitant]
     Route: 065
  4. VERAPAMIL HYDROCHLORIDE [Concomitant]
     Indication: HYPERTENSION
     Route: 065
  5. BUFFERIN [Concomitant]
     Route: 065
  6. BENICAR [Concomitant]
     Route: 065
  7. ALLEGRA [Concomitant]
     Route: 065
  8. LIPITOR [Concomitant]
     Route: 065
  9. PREDNISONE [Concomitant]
     Route: 065

REACTIONS (17)
  - ATELECTASIS [None]
  - BLOOD PRESSURE INCREASED [None]
  - BREAST MASS [None]
  - CARDIOMEGALY [None]
  - CEREBRAL ATROPHY [None]
  - CEREBRAL INFARCTION [None]
  - COUGH [None]
  - DIZZINESS [None]
  - HYDROCEPHALUS [None]
  - INCREASED UPPER AIRWAY SECRETION [None]
  - ISCHAEMIC STROKE [None]
  - LABYRINTHITIS [None]
  - LUMBAR SPINAL STENOSIS [None]
  - MITRAL VALVE INCOMPETENCE [None]
  - PHARYNGOLARYNGEAL PAIN [None]
  - SINUS DISORDER [None]
  - SPUTUM DISCOLOURED [None]
